FAERS Safety Report 17957198 (Version 1)
Quarter: 2020Q2

REPORT INFORMATION
  Report Type: Spontaneous
  Country: FR (occurrence: FR)
  Receive Date: 20200629
  Receipt Date: 20200629
  Transmission Date: 20200714
  Serious: Yes (Hospitalization)
  Sender: FDA-Public Use
  Company Number: FR-PFIZER INC-2020247415

PATIENT
  Age: 13 Year
  Sex: Male

DRUGS (1)
  1. LYRICA [Suspect]
     Active Substance: PREGABALIN
     Dosage: 30 DF
     Route: 048
     Dates: start: 202004, end: 202004

REACTIONS (4)
  - Psychomotor hyperactivity [Recovered/Resolved]
  - Off label use [Unknown]
  - Product use issue [Unknown]
  - Poisoning [Recovered/Resolved]

NARRATIVE: CASE EVENT DATE: 202004
